FAERS Safety Report 16688561 (Version 1)
Quarter: 2019Q4

REPORT INFORMATION
  Report Type: Spontaneous
  Country: US (occurrence: US)
  Receive Date: 20190809
  Receipt Date: 20190809
  Transmission Date: 20200122
  Serious: Yes (Disabling, Other)
  Sender: FDA-Public Use
  Company Number: None

PATIENT
  Age: 47 Year
  Sex: Male
  Weight: 62.1 kg

DRUGS (1)
  1. CREST PRO-HEALTH CLINICAL [Suspect]
     Active Substance: CETYLPYRIDINIUM CHLORIDE
     Indication: DENTAL DISORDER PROPHYLAXIS
     Route: 048
     Dates: start: 20190803, end: 20190805

REACTIONS (3)
  - Ageusia [None]
  - Stomatitis [None]
  - Application site pain [None]

NARRATIVE: CASE EVENT DATE: 20190804
